FAERS Safety Report 6834031-9 (Version None)
Quarter: 2010Q3

REPORT INFORMATION
  Report Type: 
  Country: None (occurrence: None)
  Receive Date: 20100712
  Receipt Date: 20070328
  Transmission Date: 20110219
  Serious: No
  Sender: FDA-Public Use
  Company Number: PFIZER INC-2007025146

PATIENT
  Sex: Female
  Weight: 68 kg

DRUGS (7)
  1. CHANTIX [Suspect]
     Indication: SMOKING CESSATION THERAPY
     Dates: start: 20070320
  2. ALTACE [Concomitant]
  3. NEXIUM [Concomitant]
     Indication: GASTRITIS
  4. NAPROXEN [Concomitant]
     Indication: ARTHRITIS
  5. PREMARIN [Concomitant]
     Indication: HORMONE REPLACEMENT THERAPY
  6. VITAMIN B-12 [Concomitant]
  7. MULTI-VITAMINS [Concomitant]

REACTIONS (2)
  - FLATULENCE [None]
  - NAUSEA [None]
